FAERS Safety Report 7533357 (Version 3)
Quarter: 2013Q4

REPORT INFORMATION
  Report Type: Spontaneous
  Country: US (occurrence: US)
  Receive Date: 20100809
  Receipt Date: 20131114
  Transmission Date: 20140711
  Serious: Yes (Hospitalization, Other)
  Sender: FDA-Public Use
  Company Number: US-BAYER-201029788NA

PATIENT
  Age: 31 Year
  Sex: Female
  Weight: 114.29 kg

DRUGS (4)
  1. YASMIN [Suspect]
     Indication: CONTRACEPTION
     Dosage: UNK UNK, UNK
     Route: 048
     Dates: start: 200707, end: 200808
  2. YASMIN [Suspect]
     Indication: ACNE
  3. ACETAMINOPHEN [Concomitant]
     Dosage: UNK
     Dates: start: 200808
  4. COLACE [Concomitant]
     Dosage: UNK
     Dates: start: 200808

REACTIONS (11)
  - Gallbladder disorder [Unknown]
  - Cholecystitis chronic [None]
  - Nausea [Unknown]
  - Abdominal distension [Unknown]
  - Diarrhoea [Unknown]
  - Vomiting [Unknown]
  - Abdominal pain [Unknown]
  - Abdominal pain [Unknown]
  - Cholelithiasis [None]
  - Biliary colic [None]
  - Gallbladder disorder [None]
